FAERS Safety Report 4270802-3 (Version None)
Quarter: 2004Q1

REPORT INFORMATION
  Report Type: 
  Country: None (occurrence: None)
  Receive Date: 20040113
  Receipt Date: 20040105
  Transmission Date: 20041129
  Serious: Yes (Life-Threatening)
  Sender: FDA-Public Use
  Company Number: 2003JP007328

PATIENT
  Age: 70 Year
  Sex: Female
  Weight: 53 kg

DRUGS (9)
  1. PROGRAF [Suspect]
     Indication: MYASTHENIA GRAVIS
     Dosage: 3 MG, UID/QD, ORAL
     Route: 048
     Dates: start: 20031009, end: 20031015
  2. PREDNISOLONE [Concomitant]
  3. PLETAAL (CILOSTAZOL) TABLET [Concomitant]
  4. ACTONEL [Concomitant]
  5. TOYOFAROL (ALFACALCIDOL) CAPSULE [Concomitant]
  6. TAKEPRON (LANSOPRAZOLE) TABLET [Concomitant]
  7. MUCOSTA (REBAMIPIDE) TABLET [Concomitant]
  8. LORCAM (LORNOXICAM) TABLET [Concomitant]
  9. SELBEX (TEPRENONE) CAPSULE [Concomitant]

REACTIONS (7)
  - ANGINA PECTORIS [None]
  - COAGULOPATHY [None]
  - DYSPNOEA [None]
  - MYASTHENIA GRAVIS [None]
  - PO2 DECREASED [None]
  - PULMONARY EMBOLISM [None]
  - THROMBOTIC MICROANGIOPATHY [None]
